FAERS Safety Report 24634625 (Version 1)
Quarter: 2024Q4

REPORT INFORMATION
  Report Type: Report from Study
  Country: NL (occurrence: NL)
  Receive Date: 20241119
  Receipt Date: 20241119
  Transmission Date: 20250114
  Serious: Yes (Hospitalization, Other)
  Sender: BIOVITRUM
  Company Number: NL-AstraZeneca-CH-00744968A

PATIENT
  Sex: Female

DRUGS (1)
  1. SYNAGIS [Suspect]
     Active Substance: PALIVIZUMAB
     Indication: Product used for unknown indication
     Dosage: 15 MILLIGRAM/KILOGRAM, QMONTH
     Route: 030
     Dates: start: 20240919

REACTIONS (1)
  - Arrhythmia [Not Recovered/Not Resolved]
